FAERS Safety Report 15808557 (Version 2)
Quarter: 2019Q1

REPORT INFORMATION
  Report Type: Report from Study
  Country: US (occurrence: US)
  Receive Date: 20190110
  Receipt Date: 20190318
  Transmission Date: 20190417
  Serious: Yes (Other)
  Sender: FDA-Public Use
  Company Number: PHEH2019US000935

PATIENT
  Sex: Female

DRUGS (2)
  1. COSENTYX [Suspect]
     Active Substance: SECUKINUMAB
     Dosage: 150 MG, QMO
     Route: 058
  2. COSENTYX [Suspect]
     Active Substance: SECUKINUMAB
     Indication: PSORIASIS
     Dosage: 300 MG, QMO
     Route: 058

REACTIONS (8)
  - Pneumonia [Unknown]
  - Tibia fracture [Unknown]
  - Pruritus [Unknown]
  - Urticaria [Unknown]
  - Skin fissures [Unknown]
  - Stress fracture [Unknown]
  - Gait disturbance [Unknown]
  - Skin haemorrhage [Unknown]
